FAERS Safety Report 4730315-9 (Version None)
Quarter: 2005Q3

REPORT INFORMATION
  Report Type: 
  Country: None (occurrence: None)
  Receive Date: 20050801
  Receipt Date: 20050718
  Transmission Date: 20060218
  Serious: Yes (Hospitalization)
  Sender: FDA-Public Use
  Company Number: FR-JNJFOC-20050703435

PATIENT
  Sex: Female

DRUGS (1)
  1. HALDOL DECANOAS [Suspect]
     Indication: DRUG USE FOR UNKNOWN INDICATION
     Dosage: DOSE GIVEN INTRAVENOUSLY RATHER THAN INTRAMUSCULARLY
     Route: 042
     Dates: start: 20050701

REACTIONS (4)
  - AGITATION [None]
  - INCORRECT ROUTE OF DRUG ADMINISTRATION [None]
  - MEDICATION ERROR [None]
  - PSYCHOTIC DISORDER [None]
